FAERS Safety Report 6355594-6 (Version None)
Quarter: 2009Q3

REPORT INFORMATION
  Report Type: 
  Country: None (occurrence: None)
  Receive Date: 20090910
  Receipt Date: 20090825
  Transmission Date: 20100115
  Serious: Yes (Death)
  Sender: FDA-Public Use
  Company Number: 2008AL005460

PATIENT
  Sex: Male
  Weight: 78.4723 kg

DRUGS (17)
  1. DIGOXIN [Suspect]
     Indication: ATRIAL TACHYCARDIA
     Dosage: PO; 0.125 MG, QOD, PO
     Route: 048
     Dates: start: 20050331
  2. DIGOXIN [Suspect]
     Indication: ATRIAL TACHYCARDIA
     Dosage: PO; 0.125 MG, QOD, PO
     Route: 048
     Dates: start: 20051001
  3. CARDIZEM [Concomitant]
  4. ZOCOR [Concomitant]
  5. LASIX [Concomitant]
  6. POTASSIUM CHLORIDE [Concomitant]
  7. ASPIRIN [Concomitant]
  8. CENTRUM [Concomitant]
  9. ZAROXOLYN [Concomitant]
  10. COUMADIN [Concomitant]
  11. PLAVIX [Concomitant]
  12. CALTRATE [Concomitant]
  13. ALLOPURINOL [Concomitant]
  14. METOLAZONE [Concomitant]
  15. TEMAZEPAM [Concomitant]
  16. ALLEGRO [Concomitant]
  17. TIKOSYN [Concomitant]

REACTIONS (9)
  - ATRIAL FIBRILLATION [None]
  - CARDIAC ARREST [None]
  - CHEST DISCOMFORT [None]
  - DYSPNOEA [None]
  - ECONOMIC PROBLEM [None]
  - EMOTIONAL DISORDER [None]
  - INJURY [None]
  - PAIN [None]
  - SOCIAL PROBLEM [None]
